FAERS Safety Report 14987874 (Version 2)
Quarter: 2018Q2

REPORT INFORMATION
  Report Type: Report from Study
  Country: GB (occurrence: GB)
  Receive Date: 20180608
  Receipt Date: 20180620
  Transmission Date: 20180711
  Serious: Yes (Other)
  Sender: FDA-Public Use
  Company Number: GB-MYLANLABS-2018M1038646

PATIENT
  Age: 50 Year
  Sex: Female

DRUGS (2)
  1. GILENYA [Suspect]
     Active Substance: FINGOLIMOD HYDROCHLORIDE
     Indication: MULTIPLE SCLEROSIS
     Dosage: 1 DF, QD
     Route: 048
     Dates: start: 20140606
  2. GABAPENTIN. [Suspect]
     Active Substance: GABAPENTIN
     Indication: LIMB DISCOMFORT
     Dosage: UNK
     Route: 065

REACTIONS (13)
  - Fatigue [Unknown]
  - Limb discomfort [Unknown]
  - Vertigo [Unknown]
  - Paraesthesia [Unknown]
  - Platelet count decreased [Recovered/Resolved]
  - Lethargy [Unknown]
  - Abdominal pain lower [Unknown]
  - Oedema [Unknown]
  - Hypertonic bladder [Unknown]
  - Somnolence [Unknown]
  - White blood cell count decreased [Unknown]
  - Dizziness [Unknown]
  - Alanine aminotransferase increased [Recovered/Resolved]

NARRATIVE: CASE EVENT DATE: 20140828
